FAERS Safety Report 24356995 (Version 1)
Quarter: 2024Q3

REPORT INFORMATION
  Report Type: Spontaneous
  Country: ID (occurrence: ID)
  Receive Date: 20240924
  Receipt Date: 20240924
  Transmission Date: 20241016
  Serious: Yes (Life-Threatening, Hospitalization)
  Sender: MACLEODS
  Company Number: ID-MLMSERVICE-20240909-PI184647-00145-1

PATIENT

DRUGS (31)
  1. CELECOXIB [Suspect]
     Active Substance: CELECOXIB
     Indication: Spinal anaesthesia
     Dosage: HIGH DOSES
     Route: 065
  2. CELECOXIB [Suspect]
     Active Substance: CELECOXIB
     Indication: Sedative therapy
  3. CELECOXIB [Suspect]
     Active Substance: CELECOXIB
     Indication: Spinal anaesthesia
  4. PREGABALIN [Suspect]
     Active Substance: PREGABALIN
     Indication: Spinal anaesthesia
     Dosage: HIGH DOSES
     Route: 065
  5. PREGABALIN [Suspect]
     Active Substance: PREGABALIN
     Indication: Spinal anaesthesia
  6. PREGABALIN [Suspect]
     Active Substance: PREGABALIN
     Indication: Sedative therapy
  7. TRAMADOL [Suspect]
     Active Substance: TRAMADOL\TRAMADOL HYDROCHLORIDE
     Indication: Spinal anaesthesia
     Dosage: HIGH DOSES
     Route: 065
  8. TRAMADOL [Suspect]
     Active Substance: TRAMADOL\TRAMADOL HYDROCHLORIDE
     Indication: Sedative therapy
  9. TRAMADOL [Suspect]
     Active Substance: TRAMADOL\TRAMADOL HYDROCHLORIDE
     Indication: Spinal anaesthesia
  10. DEXMEDETOMIDINE [Suspect]
     Active Substance: DEXMEDETOMIDINE
     Indication: Spinal anaesthesia
     Dosage: UP TO 0.8 MICROGRAMS/KILOGRAM BODY WEIGHT/HOUR-HIGH DOSES
     Route: 065
  11. DEXMEDETOMIDINE [Suspect]
     Active Substance: DEXMEDETOMIDINE
     Indication: Sedative therapy
  12. DEXMEDETOMIDINE [Suspect]
     Active Substance: DEXMEDETOMIDINE
     Indication: Spinal anaesthesia
  13. KETAMINE [Suspect]
     Active Substance: KETAMINE
     Indication: Sedative therapy
     Dosage: INTERMITTENT-HIGH DOSES
     Route: 065
  14. KETAMINE [Suspect]
     Active Substance: KETAMINE
     Indication: Spinal anaesthesia
  15. KETAMINE [Suspect]
     Active Substance: KETAMINE
     Indication: Spinal anaesthesia
  16. FENTANYL [Suspect]
     Active Substance: FENTANYL\FENTANYL CITRATE
     Indication: Spinal anaesthesia
     Dosage: INTERMITTENT-HIGH DOSES
     Route: 065
  17. FENTANYL [Suspect]
     Active Substance: FENTANYL\FENTANYL CITRATE
     Indication: Sedative therapy
  18. FENTANYL [Suspect]
     Active Substance: FENTANYL\FENTANYL CITRATE
     Indication: Spinal anaesthesia
  19. PROPOFOL [Suspect]
     Active Substance: PROPOFOL
     Indication: Sedative therapy
     Dosage: UP TO 100 MG/HOUR-HIGH DOSES
     Route: 065
  20. PROPOFOL [Suspect]
     Active Substance: PROPOFOL
     Indication: Spinal anaesthesia
  21. PROPOFOL [Suspect]
     Active Substance: PROPOFOL
     Indication: Spinal anaesthesia
  22. MORPHINE [Suspect]
     Active Substance: MORPHINE
     Indication: Spinal anaesthesia
     Dosage: INTERMITTENT-HIGH DOSES
     Route: 042
  23. MORPHINE [Suspect]
     Active Substance: MORPHINE
     Indication: Sedative therapy
     Dosage: HIGH DOSES-15 MG OVER 24 HOURS
     Route: 065
  24. MORPHINE [Suspect]
     Active Substance: MORPHINE
     Indication: Spinal anaesthesia
  25. MORPHINE [Suspect]
     Active Substance: MORPHINE
     Indication: Spinal anaesthesia
  26. METHYLPREDNISOLONE [Concomitant]
     Active Substance: METHYLPREDNISOLONE
     Indication: Meningitis bacterial
     Route: 065
  27. DULOXETINE [Concomitant]
     Active Substance: DULOXETINE
     Route: 065
  28. DULOXETINE [Concomitant]
     Active Substance: DULOXETINE
  29. RISPERIDONE [Concomitant]
     Active Substance: RISPERIDONE
     Route: 065
  30. RISPERIDONE [Concomitant]
     Active Substance: RISPERIDONE
  31. MEROPENEM [Concomitant]
     Active Substance: MEROPENEM
     Indication: Meningitis bacterial
     Route: 065

REACTIONS (2)
  - Sedation complication [Unknown]
  - Altered state of consciousness [Unknown]
